FAERS Safety Report 9787137 (Version 1)
Quarter: 2013Q4

REPORT INFORMATION
  Report Type: Spontaneous
  Country: US (occurrence: US)
  Receive Date: 20131228
  Receipt Date: 20131228
  Transmission Date: 20140711
  Serious: No
  Sender: FDA-Public Use
  Company Number: US-009507513-1312USA009661

PATIENT
  Sex: Female

DRUGS (2)
  1. CORICIDIN HBP COLD AND FLU [Suspect]
     Indication: SPUTUM DISCOLOURED
     Dosage: UNK UNK, Q6H
     Route: 048
     Dates: start: 20131105, end: 20131107
  2. CORICIDIN HBP COLD AND FLU [Suspect]
     Indication: RESPIRATORY TRACT CONGESTION

REACTIONS (1)
  - Headache [Unknown]
